FAERS Safety Report 15841418 (Version 1)
Quarter: 2019Q1

REPORT INFORMATION
  Report Type: Spontaneous
  Country: US (occurrence: US)
  Receive Date: 20190118
  Receipt Date: 20190118
  Transmission Date: 20190417
  Serious: No
  Sender: FDA-Public Use
  Company Number: US-ASTRAZENECA-2018SF11514

PATIENT
  Sex: Female

DRUGS (2)
  1. SYMBICORT [Suspect]
     Active Substance: BUDESONIDE\FORMOTEROL FUMARATE DIHYDRATE
     Indication: CHRONIC OBSTRUCTIVE PULMONARY DISEASE
     Dosage: SYMBICORT 160-4.5 UG, 2 PUFFS TWICE A DAY
     Route: 055
     Dates: start: 2017, end: 2017
  2. SYMBICORT [Suspect]
     Active Substance: BUDESONIDE\FORMOTEROL FUMARATE DIHYDRATE
     Indication: CHRONIC OBSTRUCTIVE PULMONARY DISEASE
     Dosage: SYMBICORT 160-4.5 UG, 2 PUFFS TWICE A DAY
     Route: 055
     Dates: start: 20180827

REACTIONS (4)
  - Intentional product misuse [Not Recovered/Not Resolved]
  - Product quality issue [Unknown]
  - Aphonia [Unknown]
  - Off label use [Unknown]

NARRATIVE: CASE EVENT DATE: 20180827
